FAERS Safety Report 9331455 (Version 1)
Quarter: 2013Q1

REPORT INFORMATION
  Report Type: Spontaneous
  Country: US (occurrence: None)
  Receive Date: 20130328
  Receipt Date: 20130328
  Transmission Date: 20140127
  Serious: Yes (Death)
  Sender: FDA-Public Use
  Company Number: SG-20130001-US

PATIENT
  Age: 61 Year
  Sex: Female
  Weight: 69 kg

DRUGS (8)
  1. SANGUINATE (PEGYLATED CARBOXYHEMOGLOBIN) 40 MG/ML [Suspect]
     Route: 042
     Dates: start: 20130320, end: 20130321
  2. DIOVAN [Concomitant]
  3. LOPRESSOR [Concomitant]
  4. NORVASC [Concomitant]
  5. PROCRIT [Concomitant]
  6. SYNTHROID [Concomitant]
  7. XANAX [Concomitant]
  8. FOLIC ACID [Concomitant]

REACTIONS (3)
  - Blood pressure diastolic decreased [None]
  - Tachypnoea [None]
  - Hypotension [None]
